FAERS Safety Report 22109905 (Version 1)
Quarter: 2023Q1

REPORT INFORMATION
  Report Type: Report from Study
  Country: US (occurrence: US)
  Receive Date: 20230317
  Receipt Date: 20230317
  Transmission Date: 20230417
  Serious: Yes (Other)
  Sender: FDA-Public Use
  Company Number: US-PFIZER INC-PV202300049885

PATIENT
  Age: 68 Year
  Sex: Female

DRUGS (4)
  1. IBRANCE [Suspect]
     Active Substance: PALBOCICLIB
     Indication: Breast cancer female
     Dosage: UNK
     Dates: start: 2017
  2. IBRANCE [Suspect]
     Active Substance: PALBOCICLIB
     Dosage: 75 MG, CYCLIC (TAKEN DAILY FOR 21 DAYS ON, 7 OFF )
     Dates: start: 202107
  3. ALECENSA [Concomitant]
     Active Substance: ALECTINIB HYDROCHLORIDE
     Dosage: UNK
  4. LETROZOLE [Concomitant]
     Active Substance: LETROZOLE
     Dosage: UNK

REACTIONS (22)
  - Laboratory test abnormal [Unknown]
  - White blood cell count abnormal [Unknown]
  - Haemoglobin abnormal [Unknown]
  - Brain oedema [Unknown]
  - Seizure [Unknown]
  - Appendicitis [Unknown]
  - Spinal cord compression [Unknown]
  - Fatigue [Unknown]
  - Decreased appetite [Unknown]
  - Taste disorder [Unknown]
  - Nausea [Unknown]
  - Alopecia [Unknown]
  - Fall [Unknown]
  - Hiatus hernia [Unknown]
  - Hypovitaminosis [Unknown]
  - Depressed mood [Unknown]
  - Loss of personal independence in daily activities [Unknown]
  - Thinking abnormal [Unknown]
  - Balance disorder [Unknown]
  - Memory impairment [Unknown]
  - Visual impairment [Unknown]
  - Product dose omission issue [Unknown]

NARRATIVE: CASE EVENT DATE: 20220101
